FAERS Safety Report 4348278-7 (Version None)
Quarter: 2004Q1

REPORT INFORMATION
  Report Type: 
  Country: None (occurrence: None)
  Receive Date: 20040329
  Receipt Date: 20040105
  Transmission Date: 20041129
  Serious: No
  Sender: FDA-Public Use
  Company Number: USA030845505

PATIENT
  Age: 15 Year
  Sex: Male
  Weight: 58 kg

DRUGS (3)
  1. STRATTERA [Suspect]
     Indication: ATTENTION DEFICIT/HYPERACTIVITY DISORDER
     Dosage: 40 MG/DAY
     Dates: start: 20030805, end: 20030825
  2. CLARINEX [Concomitant]
  3. RHINOCORT AQUA (BUDESONIDE) [Concomitant]

REACTIONS (11)
  - ABNORMAL DREAMS [None]
  - ANXIETY [None]
  - CONFUSIONAL STATE [None]
  - DEREALISATION [None]
  - FEELING JITTERY [None]
  - HALLUCINATIONS, MIXED [None]
  - HEADACHE [None]
  - INSOMNIA [None]
  - NERVOUSNESS [None]
  - VOMITING [None]
  - WEIGHT DECREASED [None]
